FAERS Safety Report 7770396-1 (Version None)
Quarter: 2011Q3

REPORT INFORMATION
  Report Type: 
  Country: None (occurrence: None)
  Receive Date: 20110922
  Receipt Date: 20100827
  Transmission Date: 20111222
  Serious: No
  Sender: FDA-Public Use
  Company Number: US-ASTRAZENECA-2010SE40643

PATIENT
  Age: 630 Month
  Sex: Female

DRUGS (10)
  1. SEROQUEL XR [Suspect]
     Indication: BIPOLAR DISORDER
     Dosage: VARIED 300 MG DAILY
     Route: 048
  2. SEROQUEL XR [Suspect]
     Route: 048
  3. SEROQUEL XR [Suspect]
     Indication: IMPULSIVE BEHAVIOUR
     Dosage: VARIED 300 MG DAILY
     Route: 048
  4. SEROQUEL XR [Suspect]
     Indication: DEPRESSION
     Dosage: VARIED 300 MG DAILY
     Route: 048
  5. SEROQUEL XR [Suspect]
     Indication: BORDERLINE PERSONALITY DISORDER
     Dosage: VARIED 300 MG DAILY
     Route: 048
  6. SEROQUEL XR [Suspect]
     Route: 048
  7. SEROQUEL XR [Suspect]
     Route: 048
  8. REMERON [Concomitant]
  9. SEROQUEL XR [Suspect]
     Route: 048
  10. TRAZODONE HYDROCHLORIDE [Concomitant]

REACTIONS (4)
  - NERVOUSNESS [None]
  - AKATHISIA [None]
  - INSOMNIA [None]
  - DRUG INEFFECTIVE [None]
